FAERS Safety Report 20142144 (Version 2)
Quarter: 2021Q4

REPORT INFORMATION
  Report Type: Report from Study
  Country: US (occurrence: US)
  Receive Date: 20211202
  Receipt Date: 20211222
  Transmission Date: 20220303
  Serious: Yes (Other)
  Sender: FDA-Public Use
  Company Number: US-JAZZ-2021-US-021406

PATIENT
  Sex: Male
  Weight: 103.04 kg

DRUGS (17)
  1. XYREM [Suspect]
     Active Substance: SODIUM OXYBATE
     Indication: Narcolepsy
     Dosage: 2.25 GRAM, BID
     Route: 048
     Dates: start: 201104, end: 201104
  2. XYREM [Suspect]
     Active Substance: SODIUM OXYBATE
     Dosage: DOSE ADJUSTMENT
     Route: 048
     Dates: start: 201104, end: 202109
  3. XYREM [Suspect]
     Active Substance: SODIUM OXYBATE
     Dosage: 4.5 GRAM(FIRST DOSE)
     Route: 048
     Dates: start: 202109
  4. XYREM [Suspect]
     Active Substance: SODIUM OXYBATE
     Dosage: 3 GRAM (SECOND DOSE)
     Route: 048
     Dates: start: 202109
  5. TOPAMAX [Concomitant]
     Active Substance: TOPIRAMATE
     Dosage: 0000
     Dates: start: 20150924
  6. FORFIVO XL [Concomitant]
     Active Substance: BUPROPION HYDROCHLORIDE
     Dosage: 0000
     Dates: start: 20150924
  7. ONDANSETRON HCL [Concomitant]
     Active Substance: ONDANSETRON HYDROCHLORIDE
     Dosage: 0000
     Dates: start: 20150924
  8. NAMENDA [Concomitant]
     Active Substance: MEMANTINE HYDROCHLORIDE
     Dosage: 0000
     Dates: start: 20160201
  9. CHLORHEXIDINE [Concomitant]
     Active Substance: CHLORHEXIDINE
     Dosage: 0000
     Dates: start: 20160310
  10. METHYLCOBALAMIN [Concomitant]
     Active Substance: METHYLCOBALAMIN
     Dosage: 0000
     Dates: start: 20160310
  11. LEVOMEFOLIC ACID [Concomitant]
     Active Substance: LEVOMEFOLIC ACID
     Dosage: 0000
     Dates: start: 20160310
  12. LACTASE [Concomitant]
     Active Substance: LACTASE
     Dosage: 0000
     Dates: start: 20160310
  13. TOCOPHEROL [Concomitant]
     Active Substance: TOCOPHEROL
     Dosage: 0000
     Dates: start: 20160310
  14. TAMSULOSIN HYDROCHLORIDE [Concomitant]
     Active Substance: TAMSULOSIN HYDROCHLORIDE
     Dosage: 0000
     Dates: start: 20160310
  15. EVEKEO [Concomitant]
     Active Substance: AMPHETAMINE SULFATE
     Dosage: 0000
     Dates: start: 20170101
  16. FAMOTIDINE [Concomitant]
     Active Substance: FAMOTIDINE
     Dosage: 0000
     Dates: start: 20210201
  17. VITAMIN D2 [Concomitant]
     Active Substance: ERGOCALCIFEROL
     Dosage: 0000
     Dates: start: 20201101

REACTIONS (3)
  - Chronic kidney disease [Unknown]
  - Urine amphetamine positive [Unknown]
  - Opiates positive [Unknown]
